FAERS Safety Report 9263448 (Version 1)
Quarter: 2013Q2

REPORT INFORMATION
  Report Type: Report from Study
  Country: US (occurrence: US)
  Receive Date: 20130430
  Receipt Date: 20130430
  Transmission Date: 20140414
  Serious: No
  Sender: FDA-Public Use
  Company Number: US-ABBOTT-13P-163-1051910-00

PATIENT
  Sex: Male

DRUGS (3)
  1. CREON [Suspect]
     Indication: PANCREATITIS CHRONIC
     Dosage: 3 TO 5 PILLS PER MEAL
  2. CREON [Suspect]
  3. CREON [Suspect]
     Dosage: 1-2 PILLS OF CREON DAILY

REACTIONS (3)
  - Panic attack [Not Recovered/Not Resolved]
  - Dyspepsia [Not Recovered/Not Resolved]
  - Incorrect dose administered [Unknown]
